FAERS Safety Report 8191125-6 (Version None)
Quarter: 2012Q1

REPORT INFORMATION
  Report Type: 
  Country: None (occurrence: None)
  Receive Date: 20120307
  Receipt Date: 20120217
  Transmission Date: 20120608
  Serious: Yes (Life-Threatening)
  Sender: FDA-Public Use
  Company Number: JP-GLAXOSMITHKLINE-B0783427A

PATIENT
  Sex: Male
  Weight: 31 kg

DRUGS (4)
  1. MUCODYNE [Concomitant]
     Indication: NASOPHARYNGITIS
     Route: 048
     Dates: start: 20120214
  2. CLARITHROMYCIN [Concomitant]
     Indication: NASOPHARYNGITIS
     Route: 048
     Dates: start: 20120214
  3. ZESULAN [Concomitant]
     Indication: NASOPHARYNGITIS
     Route: 048
     Dates: start: 20120214
  4. RELENZA [Suspect]
     Indication: INFLUENZA
     Dosage: 10MG PER DAY
     Route: 055
     Dates: start: 20120216, end: 20120216

REACTIONS (1)
  - AGITATION [None]
